FAERS Safety Report 24605850 (Version 1)
Quarter: 2024Q4

REPORT INFORMATION
  Report Type: Report from Study
  Country: US (occurrence: US)
  Receive Date: 20241111
  Receipt Date: 20241111
  Transmission Date: 20250115
  Serious: Yes (Hospitalization)
  Sender: ABBVIE
  Company Number: US-ABBVIE-5976258

PATIENT
  Age: 68 Year
  Sex: Male
  Weight: 96.161 kg

DRUGS (2)
  1. HUMIRA [Suspect]
     Active Substance: ADALIMUMAB
     Indication: Ankylosing spondylitis
     Dosage: DISCONTINUED IN MAR OR APR 2024
     Route: 058
     Dates: start: 2014, end: 2024
  2. HUMIRA [Suspect]
     Active Substance: ADALIMUMAB
     Route: 058
     Dates: start: 2024

REACTIONS (5)
  - Sleep deficit [Recovering/Resolving]
  - Paranoia [Recovering/Resolving]
  - Hospitalisation [Recovered/Resolved]
  - Pain [Recovered/Resolved]
  - Product storage error [Unknown]

NARRATIVE: CASE EVENT DATE: 20230801
